FAERS Safety Report 4707103-2 (Version None)
Quarter: 2005Q3

REPORT INFORMATION
  Report Type: 
  Country: None (occurrence: None)
  Receive Date: 20050706
  Receipt Date: 20041112
  Transmission Date: 20060218
  Serious: Yes (Other)
  Sender: FDA-Public Use
  Company Number: PHHO2004JP16260

PATIENT
  Age: 78 Year
  Sex: Female

DRUGS (8)
  1. DIOVAN [Suspect]
     Indication: HYPERTENSION
     Dosage: 80 MG, QD
     Route: 048
     Dates: start: 20030228
  2. CONIEL [Concomitant]
     Indication: HYPERTENSION
     Dosage: 4 MG, UNK
     Route: 048
     Dates: start: 20020502
  3. LASIX [Concomitant]
     Indication: CARDIAC FAILURE
     Dosage: 20 MG, UNK
     Route: 048
     Dates: start: 20020502
  4. THEOLONG [Concomitant]
     Indication: ASTHMA
     Dosage: 200 MG, UNK
     Route: 048
     Dates: start: 20021122
  5. MUCODYNE [Concomitant]
     Indication: ASTHMA
     Dosage: 750 MG, UNK
     Route: 048
     Dates: start: 20030117
  6. BISOLVON [Concomitant]
     Indication: ASTHMA
     Dosage: 12 MG, UNK
     Route: 048
     Dates: start: 20030328
  7. ULCERLMIN [Concomitant]
     Indication: GASTRITIS
     Dosage: 3 G, UNK
     Route: 048
     Dates: start: 19990108
  8. LOXONIN [Concomitant]
     Indication: BACK PAIN
     Route: 048
     Dates: start: 20020621

REACTIONS (3)
  - BLADDER CATHETERISATION [None]
  - NEUROGENIC BLADDER [None]
  - URINARY RETENTION [None]
